FAERS Safety Report 15566100 (Version 1)
Quarter: 2018Q4

REPORT INFORMATION
  Report Type: Spontaneous
  Country: US (occurrence: US)
  Receive Date: 20181025
  Receipt Date: 20181025
  Transmission Date: 20190205
  Serious: Yes (Hospitalization, Other)
  Sender: FDA-Public Use
  Company Number: None

PATIENT
  Age: 12 Year
  Sex: Male
  Weight: 59.9 kg

DRUGS (3)
  1. D5W WITH 0.2% NACL + SODIUM BICARBONATE 30MEQ [Concomitant]
     Dates: start: 20181009, end: 20181009
  2. VINCRISTINE [Concomitant]
     Active Substance: VINCRISTINE
     Dates: start: 20181009, end: 20181009
  3. METHOTREXATE. [Suspect]
     Active Substance: METHOTREXATE
     Indication: B PRECURSOR TYPE ACUTE LEUKAEMIA
     Route: 041

REACTIONS (2)
  - Renal function test abnormal [None]
  - Drug clearance decreased [None]

NARRATIVE: CASE EVENT DATE: 20181009
